FAERS Safety Report 5808769-6 (Version None)
Quarter: 2008Q3

REPORT INFORMATION
  Report Type: 
  Country: None (occurrence: None)
  Receive Date: 20080710
  Receipt Date: 20080710
  Transmission Date: 20090109
  Serious: Yes (Hospitalization, Disabling)
  Sender: FDA-Public Use
  Company Number: None

PATIENT
  Age: 64 Year
  Sex: Male
  Weight: 81.6475 kg

DRUGS (1)
  1. DIGOXIN [Suspect]

REACTIONS (3)
  - CHEST DISCOMFORT [None]
  - HEART RATE IRREGULAR [None]
  - NAUSEA [None]
